FAERS Safety Report 4699540-X (Version None)
Quarter: 2005Q2

REPORT INFORMATION
  Report Type: 
  Country: None (occurrence: None)
  Receive Date: 20050622
  Receipt Date: 20050620
  Transmission Date: 20051028
  Serious: Yes (Death)
  Sender: FDA-Public Use
  Company Number: THQ2005A00524

PATIENT
  Age: 77 Year
  Sex: Male

DRUGS (22)
  1. LANSOPRAZOLE [Suspect]
     Dosage: 1 IN 1 D ORAL
     Route: 048
  2. COMBIVENT [Suspect]
     Dosage: 4 IN 1 D INHALATION
     Route: 055
  3. SPIRIVA [Suspect]
     Dosage: INHALATION
     Route: 055
  4. SALBUTAMOL [Suspect]
     Dosage: 2 IN 1 AS REQUIRED INHALATION
     Route: 055
  5. ASPIRIN [Suspect]
  6. ATORVASTATIN CALCIUM [Suspect]
  7. BECLOMETHASONE (BECLOMTASONE DIPROPIONATE) [Suspect]
     Dosage: 2 IN 2 D INHALATION
     Route: 055
  8. FRUMIL (FRUMIL) [Suspect]
  9. DEXAMETHASONE [Suspect]
  10. DILTIAZEM [Suspect]
     Dosage: 2 IN 1 D
  11. DOTHIEPIN HYDROCHLORIDE [Suspect]
  12. FUROSEMIDE [Suspect]
     Dosage: 1 IN 1 D
  13. GAVISCON [Suspect]
     Dosage: 4 IN 1 D
  14. LACTULOSE [Suspect]
     Dosage: 3.35 G/5 ML
  15. METOCLOPRAMIDE [Suspect]
     Dosage: 3 IN 1 D
  16. NITROLINGUAL (GLYCERYL TRINITRATE) [Suspect]
     Dosage: 1 IN 1 D
  17. NOZINAN (LEVOMEPROMAZINE) [Concomitant]
     Dosage: 4 IN 1 D
  18. OXYCODONE HCL [Suspect]
     Dosage: 2 IN 1 D
  19. OXYGEN [Suspect]
     Dosage: INHALATION
     Route: 055
  20. SPIRONOLACTONE [Suspect]
  21. SYMBICORT (FORASEQ) [Suspect]
     Dosage: 2 IN 1
  22. TEMAZEPAM [Suspect]
     Dosage: 2 IN 1 D

REACTIONS (2)
  - LUNG NEOPLASM MALIGNANT [None]
  - MESOTHELIOMA MALIGNANT [None]
